FAERS Safety Report 7980102-3 (Version None)
Quarter: 2011Q4

REPORT INFORMATION
  Report Type: 
  Country: None (occurrence: None)
  Receive Date: 20111212
  Receipt Date: 20111123
  Transmission Date: 20120403
  Serious: Yes (Other)
  Sender: FDA-Public Use
  Company Number: ADR-2011208086

PATIENT
  Age: 38 Year
  Sex: Female
  Weight: 63.5036 kg

DRUGS (2)
  1. CITALOPRAM HYDROBROMIDE [Suspect]
     Indication: DEPRESSION
     Dosage: BID
     Dates: start: 20090501, end: 20111001
  2. ANTIBIOTICS (DETAILS NOT MENTIONED) [Concomitant]

REACTIONS (3)
  - BLINDNESS [None]
  - ANGLE CLOSURE GLAUCOMA [None]
  - MIGRAINE [None]
